FAERS Safety Report 14838226 (Version 1)
Quarter: 2018Q2

REPORT INFORMATION
  Report Type: Spontaneous
  Country: US (occurrence: US)
  Receive Date: 20180420
  Receipt Date: 20180420
  Transmission Date: 20180711
  Serious: No
  Sender: FDA-Public Use
  Company Number: None

PATIENT
  Age: 68 Year
  Sex: Female

DRUGS (1)
  1. PROLIA [Suspect]
     Active Substance: DENOSUMAB
     Indication: OSTEOPOROSIS
     Dosage: 60MG/ML Q6M SQ
     Route: 058
     Dates: start: 20171026

REACTIONS (3)
  - Secretion discharge [None]
  - Hallucination [None]
  - Paranoia [None]

NARRATIVE: CASE EVENT DATE: 20171101
